FAERS Safety Report 10401816 (Version 1)
Quarter: 2014Q3

REPORT INFORMATION
  Report Type: Spontaneous
  Country: US (occurrence: None)
  Receive Date: 20140820
  Receipt Date: 20140820
  Transmission Date: 20150326
  Serious: Yes (Hospitalization)
  Sender: FDA-Public Use
  Company Number: None

PATIENT
  Age: 73 Year
  Sex: Male

DRUGS (18)
  1. TESTOSTERONE. [Concomitant]
     Active Substance: TESTOSTERONE
  2. FLUOROURACIL. [Concomitant]
     Active Substance: FLUOROURACIL
  3. REVLIMID [Suspect]
     Active Substance: LENALIDOMIDE
     Indication: PLASMA CELL MYELOMA
     Route: 048
     Dates: start: 20131016, end: 20140819
  4. METRONIDAZOLE. [Concomitant]
     Active Substance: METRONIDAZOLE
  5. FLUOCINONIDE. [Suspect]
     Active Substance: FLUOCINONIDE
  6. EPLERENONE. [Concomitant]
     Active Substance: EPLERENONE
  7. ZOLPIDEM [Concomitant]
     Active Substance: ZOLPIDEM\ZOLPIDEM TARTRATE
  8. FUROSEMIDE. [Suspect]
     Active Substance: FUROSEMIDE
  9. CIPROFLOXACIN. [Concomitant]
     Active Substance: CIPROFLOXACIN
  10. LISINOPRIL. [Concomitant]
     Active Substance: LISINOPRIL
  11. HYDROCODONE ACETAMINOPHEN [Concomitant]
     Active Substance: ACETAMINOPHEN\HYDROCODONE BITARTRATE
  12. CARVEDILOL. [Concomitant]
     Active Substance: CARVEDILOL
  13. ALPRAZOLAM. [Concomitant]
     Active Substance: ALPRAZOLAM
  14. DIGOXIN. [Concomitant]
     Active Substance: DIGOXIN
  15. ALBUTEROL. [Concomitant]
     Active Substance: ALBUTEROL
  16. CIALIS [Concomitant]
     Active Substance: TADALAFIL
  17. WARFARIN [Concomitant]
     Active Substance: WARFARIN
  18. DOXYCYCLINE. [Concomitant]
     Active Substance: DOXYCYCLINE

REACTIONS (10)
  - Pain [None]
  - Nausea [None]
  - Chills [None]
  - Malaise [None]
  - Thrombocytopenia [None]
  - Diverticulitis [None]
  - Abdominal tenderness [None]
  - Pyrexia [None]
  - Tenderness [None]
  - Cough [None]

NARRATIVE: CASE EVENT DATE: 20140815
